FAERS Safety Report 5155851-5 (Version None)
Quarter: 2006Q4

REPORT INFORMATION
  Report Type: 
  Country: None (occurrence: None)
  Receive Date: 20061122
  Receipt Date: 20061110
  Transmission Date: 20070319
  Serious: Yes (Other)
  Sender: FDA-Public Use
  Company Number: PHBS2006NL17522

PATIENT
  Sex: Male

DRUGS (1)
  1. LAMISIL [Suspect]
     Route: 048

REACTIONS (4)
  - DIPLOPIA [None]
  - EYELID PTOSIS [None]
  - MUSCULAR WEAKNESS [None]
  - MYASTHENIA GRAVIS [None]
